FAERS Safety Report 11162126 (Version 1)
Quarter: 2015Q2

REPORT INFORMATION
  Report Type: Spontaneous
  Country: US (occurrence: US)
  Receive Date: 20150604
  Receipt Date: 20150604
  Transmission Date: 20150821
  Serious: No
  Sender: FDA-Public Use
  Company Number: US-SA-2014SA157802

PATIENT
  Age: 61 Year
  Sex: Female

DRUGS (3)
  1. LEVOTHYROXINE [Concomitant]
     Active Substance: LEVOTHYROXINE
  2. NOVOLOG [Concomitant]
     Active Substance: INSULIN ASPART
     Indication: TYPE 1 DIABETES MELLITUS
     Dates: start: 2011
  3. LANTUS SOLOSTAR [Suspect]
     Active Substance: INSULIN GLARGINE
     Indication: TYPE 1 DIABETES MELLITUS
     Dosage: DOSE 7 UNITS/6 UNITS LUNCH/BEDTIME
     Route: 065
     Dates: start: 2011

REACTIONS (5)
  - Drug administration error [Unknown]
  - Dermatitis [Unknown]
  - Skin warm [Unknown]
  - Rash pruritic [Unknown]
  - Blood glucose abnormal [Unknown]
